FAERS Safety Report 14289098 (Version 2)
Quarter: 2018Q1

REPORT INFORMATION
  Report Type: Spontaneous
  Country: US (occurrence: US)
  Receive Date: 20171214
  Receipt Date: 20180109
  Transmission Date: 20180509
  Serious: Yes (Other)
  Sender: FDA-Public Use
  Company Number: US-SUNOVION-2017SUN005310

PATIENT
  Age: 85 Year
  Sex: Female

DRUGS (2)
  1. LUNESTA [Suspect]
     Active Substance: ESZOPICLONE
     Indication: INSOMNIA
     Route: 048
  2. ESZOPICLONE. [Suspect]
     Active Substance: ESZOPICLONE
     Indication: INSOMNIA
     Route: 048

REACTIONS (7)
  - Sleep disorder [Unknown]
  - Foot amputation [Unknown]
  - Drug ineffective [Unknown]
  - Osteoarthritis [Unknown]
  - Insomnia [Unknown]
  - Pain [Unknown]
  - Shoulder arthroplasty [Unknown]
